FAERS Safety Report 7235088-6 (Version None)
Quarter: 2011Q1

REPORT INFORMATION
  Report Type: 
  Country: None (occurrence: None)
  Receive Date: 20110114
  Receipt Date: 20110114
  Transmission Date: 20110831
  Serious: Yes (Hospitalization)
  Sender: FDA-Public Use
  Company Number: None

PATIENT
  Sex: Female
  Weight: 65.7716 kg

DRUGS (1)
  1. ACCUTANE [Suspect]
     Indication: ACNE CYSTIC
     Dates: start: 20000601, end: 20010601

REACTIONS (7)
  - DYSURIA [None]
  - DYSSTASIA [None]
  - BURNING SENSATION [None]
  - ABDOMINAL PAIN [None]
  - URINARY TRACT INFECTION [None]
  - DYSPAREUNIA [None]
  - CYSTITIS [None]
